FAERS Safety Report 21813119 (Version 2)
Quarter: 2024Q1

REPORT INFORMATION
  Report Type: Spontaneous
  Country: US (occurrence: US)
  Receive Date: 20230103
  Receipt Date: 20240103
  Transmission Date: 20240410
  Serious: Yes (Other)
  Sender: FDA-Public Use
  Company Number: US-PFIZER INC-202201401467

PATIENT
  Age: 64 Year
  Sex: Female

DRUGS (1)
  1. MEPERIDINE [Suspect]
     Active Substance: MEPERIDINE

REACTIONS (2)
  - Drug dependence [Unknown]
  - Knee arthroplasty [Unknown]
